FAERS Safety Report 20634263 (Version 1)
Quarter: 2022Q1

REPORT INFORMATION
  Report Type: Report from Study
  Country: US (occurrence: US)
  Receive Date: 20220325
  Receipt Date: 20220325
  Transmission Date: 20220423
  Serious: Yes (Other)
  Sender: FDA-Public Use
  Company Number: US-ABBVIE-22K-163-4328424-00

PATIENT
  Sex: Female

DRUGS (3)
  1. CREON [Suspect]
     Active Substance: PANCRELIPASE AMYLASE\PANCRELIPASE LIPASE\PANCRELIPASE PROTEASE
     Indication: Product used for unknown indication
     Route: 048
  2. MODERNA COVID-19 VACCINE [Concomitant]
     Active Substance: ELASOMERAN
     Indication: COVID-19 immunisation
     Route: 030
     Dates: start: 20210305, end: 20210305
  3. MODERNA COVID-19 VACCINE [Concomitant]
     Active Substance: ELASOMERAN
     Route: 030
     Dates: start: 20210412, end: 20210412

REACTIONS (3)
  - SARS-CoV-2 test positive [Unknown]
  - Illness [Unknown]
  - General physical health deterioration [Unknown]

NARRATIVE: CASE EVENT DATE: 20220101
